FAERS Safety Report 19488487 (Version 2)
Quarter: 2021Q3

REPORT INFORMATION
  Report Type: Spontaneous
  Country: BR (occurrence: BR)
  Receive Date: 20210702
  Receipt Date: 20210709
  Transmission Date: 20211014
  Serious: Yes (Other)
  Sender: FDA-Public Use
  Company Number: BR-ABBVIE-21P-020-3975637-00

PATIENT
  Age: 16 Year
  Sex: Female

DRUGS (1)
  1. DIVALCON [Suspect]
     Active Substance: DIVALPROEX SODIUM
     Indication: PRODUCT USED FOR UNKNOWN INDICATION
     Route: 065

REACTIONS (5)
  - Eye movement disorder [Unknown]
  - Suicide attempt [Unknown]
  - Aphasia [Unknown]
  - Dysstasia [Unknown]
  - Intentional overdose [Unknown]
